FAERS Safety Report 7577263-7 (Version None)
Quarter: 2011Q2

REPORT INFORMATION
  Report Type: 
  Country: None (occurrence: None)
  Receive Date: 20110621
  Receipt Date: 20110609
  Transmission Date: 20111010
  Serious: Yes (Hospitalization)
  Sender: FDA-Public Use
  Company Number: 2011VY000028

PATIENT
  Age: 63 Year
  Sex: Male
  Weight: 72.5755 kg

DRUGS (9)
  1. OXYCODONE HCL AND ACETAMINOPHEN [Suspect]
     Indication: ARTHRALGIA
     Dates: start: 20110512
  2. TRAMADOL HCL [Suspect]
     Indication: ARTHRALGIA
     Dosage: PRN; PO
     Route: 048
     Dates: start: 20110510, end: 20110512
  3. COUMADIN [Suspect]
     Indication: AORTIC VALVE REPLACEMENT
     Dosage: 7 MG; QD; PO
     Route: 048
  4. ASPIRIN [Concomitant]
  5. ALLOPURINOL [Concomitant]
  6. TOPROL-XL [Concomitant]
  7. LIPITOR [Concomitant]
  8. EPZICOM [Concomitant]
  9. REYATAZ [Suspect]
     Indication: HIV INFECTION

REACTIONS (12)
  - FEELING ABNORMAL [None]
  - BLOOD BILIRUBIN INCREASED [None]
  - DEHYDRATION [None]
  - INTRA-ABDOMINAL HAEMORRHAGE [None]
  - DRUG INEFFECTIVE [None]
  - DECREASED APPETITE [None]
  - PLATELET COUNT DECREASED [None]
  - INTERNATIONAL NORMALISED RATIO INCREASED [None]
  - GASTROINTESTINAL HAEMORRHAGE [None]
  - SPLENIC HAEMORRHAGE [None]
  - ANAEMIA [None]
  - DRUG INTERACTION [None]
